FAERS Safety Report 24394389 (Version 1)
Quarter: 2024Q4

REPORT INFORMATION
  Report Type: Spontaneous
  Country: AU (occurrence: AU)
  Receive Date: 20241004
  Receipt Date: 20241004
  Transmission Date: 20250115
  Serious: Yes (Other)
  Sender: NOVO NORDISK
  Company Number: None

PATIENT
  Sex: Male

DRUGS (3)
  1. OZEMPIC [Suspect]
     Active Substance: SEMAGLUTIDE
     Dosage: UNK (RESUMED  AT FULL DOSAGE)
     Dates: start: 20231012
  2. OZEMPIC [Suspect]
     Active Substance: SEMAGLUTIDE
     Indication: Weight control
     Dosage: UNK
  3. OZEMPIC [Suspect]
     Active Substance: SEMAGLUTIDE
     Dosage: 0.5 MG
     Dates: start: 20231019

REACTIONS (21)
  - Suicidal ideation [Unknown]
  - Visual impairment [Unknown]
  - Dehydration [Unknown]
  - Anxiety [Unknown]
  - Arthralgia [Unknown]
  - Back pain [Unknown]
  - Cough [Unknown]
  - Depression [Unknown]
  - Headache [Unknown]
  - Irritability [Unknown]
  - Myalgia [Unknown]
  - Somnolence [Unknown]
  - Wheezing [Unknown]
  - Taste disorder [Unknown]
  - Asthenia [Unknown]
  - Dyspepsia [Unknown]
  - Fatigue [Unknown]
  - Constipation [Unknown]
  - Abdominal pain [Unknown]
  - Dizziness [Unknown]
  - Product use in unapproved indication [Unknown]

NARRATIVE: CASE EVENT DATE: 20231012
